FAERS Safety Report 13162664 (Version 2)
Quarter: 2017Q1

REPORT INFORMATION
  Report Type: Spontaneous
  Country: GB (occurrence: GB)
  Receive Date: 20170130
  Receipt Date: 20170303
  Transmission Date: 20170428
  Serious: Yes (Other)
  Sender: FDA-Public Use
  Company Number: GB-009507513-1701GBR011791

PATIENT
  Age: 71 Year
  Sex: Male

DRUGS (7)
  1. SIMVASTATIN. [Suspect]
     Active Substance: SIMVASTATIN
     Dosage: UNK
     Route: 048
  2. RANEXA [Interacting]
     Active Substance: RANOLAZINE
     Indication: ANGINA PECTORIS
     Dosage: 375 MG, BID
     Dates: start: 20151016
  3. GLYCERYL TRINITRATE [Concomitant]
     Active Substance: NITROGLYCERIN
     Indication: CHEST PAIN
     Dosage: SPRAY,TO BE USED IF NEEDED
     Route: 060
  4. ASPIRIN. [Concomitant]
     Active Substance: ASPIRIN
     Dosage: 75MG,QD
     Route: 048
  5. TILIDEM LA [Concomitant]
     Dosage: 200 MG, QD
  6. RAMIPRIL. [Concomitant]
     Active Substance: RAMIPRIL
     Dosage: 12.5 MG, QD
  7. LANSOPRAZOLE. [Concomitant]
     Active Substance: LANSOPRAZOLE
     Dosage: 30 MG, QD

REACTIONS (2)
  - Pain in extremity [Recovered/Resolved]
  - Drug interaction [Recovered/Resolved]

NARRATIVE: CASE EVENT DATE: 20151016
